FAERS Safety Report 16479122 (Version 1)
Quarter: 2019Q2

REPORT INFORMATION
  Report Type: Spontaneous
  Country: US (occurrence: US)
  Receive Date: 20190626
  Receipt Date: 20190626
  Transmission Date: 20190711
  Serious: Yes (Hospitalization)
  Sender: FDA-Public Use
  Company Number: US-SAOL THERAPEUTICS-2018SAO01004

PATIENT
  Age: 37 Year
  Sex: Male
  Weight: 91.16 kg

DRUGS (27)
  1. UNASYN; SODIUM CHLORIDE [Concomitant]
     Dosage: 1 DOSAGE UNITS, EVERY 6 HOURS AT 21
     Route: 042
  2. LIORESAL [Suspect]
     Active Substance: BACLOFEN
     Indication: SPINAL CORD INJURY
     Dosage: 1201.56 ?G/DAY (50.07 ?G/HR)
     Route: 037
  3. BACLOFEN. [Concomitant]
     Active Substance: BACLOFEN
     Dosage: 20 MG, 1X/DAY
     Route: 048
     Dates: start: 201701
  4. MELATONIN [Concomitant]
     Active Substance: MELATONIN
     Dosage: 5 MG, 1X/DAY AT BEDTIME AS NEEDED
     Route: 048
  5. METAMUCIL [Concomitant]
     Active Substance: PLANTAGO SEED
     Dosage: 1 DOSAGE UNITS, 1X/DAY AT 20
     Route: 048
  6. MULTIVITAMIN [Concomitant]
     Active Substance: VITAMINS
     Dosage: 1 TABLETS, 1X/DAY
     Route: 048
  7. ATIVAN [Concomitant]
     Active Substance: LORAZEPAM
     Dosage: 0.5 MG, EVERY 6 HOURS AS NEEDED
     Route: 048
  8. TYLENOL [Concomitant]
     Active Substance: ACETAMINOPHEN
     Dosage: 650 MG, EVERY 6 HOURS AS NEEDED
     Route: 048
  9. NORCO [Concomitant]
     Active Substance: ACETAMINOPHEN\HYDROCODONE BITARTRATE
     Dosage: 1 TABLETS, EVERY 4 HOURS AS NEEDED
     Route: 048
  10. BACLOFEN. [Concomitant]
     Active Substance: BACLOFEN
     Dosage: 10 MG, 2X/DAY
     Route: 048
     Dates: start: 201701
  11. LIORESAL [Suspect]
     Active Substance: BACLOFEN
     Indication: MYELOPATHY
     Dosage: 24 ?G, \DAY
     Route: 037
  12. MAALOX ANTACID [Concomitant]
     Active Substance: ALUMINUM HYDROXIDE\DIMETHICONE\MAGNESIUM HYDROXIDE
     Dosage: 30 ML, EVERY 6 HOURS AS NEEDED
     Route: 048
  13. FLOMAX [Concomitant]
     Active Substance: TAMSULOSIN HYDROCHLORIDE
     Dosage: 0.4 MG, 1X/DAY AFTER MEALS
     Route: 048
  14. AUGMENTIN [Concomitant]
     Active Substance: AMOXICILLIN\CLAVULANATE POTASSIUM
     Dosage: 875 MG, 2X/DAY WITH MEALS
     Route: 048
  15. FLEET ENEMA [Concomitant]
     Active Substance: SODIUM PHOSPHATE, DIBASIC\SODIUM PHOSPHATE, MONOBASIC
     Dosage: 133 ML, AS NEEDED
     Route: 054
  16. VIAGRA [Concomitant]
     Active Substance: SILDENAFIL CITRATE
     Dosage: UNK, AS NEEDED
     Route: 048
  17. PERCOCET [Concomitant]
     Active Substance: ACETAMINOPHEN\OXYCODONE HYDROCHLORIDE
     Dosage: 1 DOSAGE UNITS, UP TO 6X/DAY
     Route: 048
  18. PEPCID [Concomitant]
     Active Substance: FAMOTIDINE
     Dosage: 20 MG, 2X/DAY
     Route: 048
  19. LIORESAL [Suspect]
     Active Substance: BACLOFEN
     Indication: MUSCLE SPASTICITY
     Dosage: 1200 UNK
     Route: 037
     Dates: start: 20180813
  20. DULCOLAX NOS [Concomitant]
     Active Substance: BISACODYL OR DOCUSATE SODIUM
     Dosage: 10 MG, 2X/DAY AS NEEDED
     Route: 054
  21. CEFAZOLIN SODIUM/SODIUM CHLORIDE [Concomitant]
     Dosage: 1 G, EVERY 8 HOURS AT 7
     Route: 042
  22. PHENERGAN [Concomitant]
     Active Substance: PROMETHAZINE HYDROCHLORIDE
     Dosage: 25 MG, UP TO 6X/DAY
     Route: 054
  23. VENTOLIN/PROVETIL [Concomitant]
     Dosage: 2.5 MG, 4X/DAY
  24. CYMBALTA [Concomitant]
     Active Substance: DULOXETINE HYDROCHLORIDE
     Dosage: 60 MG, 1X/DAY
     Route: 048
  25. ANCEF [Concomitant]
     Active Substance: CEFAZOLIN SODIUM
     Dosage: 1 G, UP TO 3X/DAY
     Route: 042
  26. IMODIUM AD [Concomitant]
     Active Substance: LOPERAMIDE HYDROCHLORIDE
     Dosage: ALSO AT 2 MG
     Route: 048
  27. COLACE [Concomitant]
     Active Substance: DOCUSATE SODIUM
     Dosage: 100 MG, UP TO 2X/DAY

REACTIONS (9)
  - Nausea [Recovered/Resolved]
  - Aspiration [Recovered/Resolved]
  - Overdose [Recovered/Resolved]
  - Vomiting [Recovered/Resolved]
  - Dyspnoea [Recovered/Resolved]
  - Blood pressure abnormal [Recovered/Resolved]
  - Lethargy [Recovered/Resolved]
  - Muscular weakness [Recovered/Resolved]
  - Product prescribing error [Recovered/Resolved]

NARRATIVE: CASE EVENT DATE: 20180813
